FAERS Safety Report 11984191 (Version 1)
Quarter: 2016Q1

REPORT INFORMATION
  Report Type: Spontaneous
  Country: US (occurrence: US)
  Receive Date: 20160201
  Receipt Date: 20160201
  Transmission Date: 20160526
  Serious: No
  Sender: FDA-Public Use
  Company Number: US-ASTRAZENECA-2016SE07170

PATIENT
  Sex: Male
  Weight: 134.7 kg

DRUGS (6)
  1. WATER PILL [Concomitant]
     Active Substance: UNSPECIFIED INGREDIENT
  2. LEVAMIR [Concomitant]
  3. PREDNISONE. [Concomitant]
     Active Substance: PREDNISONE
  4. BYDUREON [Suspect]
     Active Substance: EXENATIDE
     Indication: TYPE 2 DIABETES MELLITUS
     Route: 058
     Dates: start: 20150705
  5. ALBUTEROL. [Concomitant]
     Active Substance: ALBUTEROL
  6. OXYGEN. [Concomitant]
     Active Substance: OXYGEN

REACTIONS (9)
  - Injection site haemorrhage [Unknown]
  - Pollakiuria [Unknown]
  - Dysuria [Unknown]
  - Nervousness [Unknown]
  - Dizziness [Unknown]
  - Hypoglycaemia [Unknown]
  - Injection site mass [Unknown]
  - Visual acuity reduced [Unknown]
  - Flatulence [Unknown]
